FAERS Safety Report 19771680 (Version 3)
Quarter: 2021Q4

REPORT INFORMATION
  Report Type: Spontaneous
  Country: US (occurrence: US)
  Receive Date: 20210901
  Receipt Date: 20211022
  Transmission Date: 20220303
  Serious: No
  Sender: FDA-Public Use
  Company Number: US-SANOFI-00744221

PATIENT
  Age: 79 Year
  Sex: Male

DRUGS (1)
  1. NASACORT ALLERGY 24HR [Suspect]
     Active Substance: TRIAMCINOLONE ACETONIDE
     Indication: Vertigo
     Dosage: UNK
     Route: 065

REACTIONS (2)
  - Dysphonia [Unknown]
  - Pharyngeal swelling [Unknown]
